FAERS Safety Report 24455018 (Version 2)
Quarter: 2024Q4

REPORT INFORMATION
  Report Type: Report from Study
  Country: US (occurrence: US)
  Receive Date: 20241017
  Receipt Date: 20241018
  Transmission Date: 20250114
  Serious: No
  Sender: ROCHE
  Company Number: US-ROCHE-3479676

PATIENT
  Age: 57 Year
  Sex: Female

DRUGS (3)
  1. RITUXAN [Suspect]
     Active Substance: RITUXIMAB
     Indication: Neuromyelitis optica spectrum disorder
     Dosage: 1000 MG IV DAY 1AND DAY 15 REPEAT EVERY 6 MONTHS
     Route: 041
  2. BACLOFEN [Concomitant]
     Active Substance: BACLOFEN
  3. NORTRIPTYLINE [Concomitant]
     Active Substance: NORTRIPTYLINE

REACTIONS (2)
  - Off label use [Unknown]
  - No adverse event [Unknown]
